FAERS Safety Report 8321839-6 (Version None)
Quarter: 2012Q2

REPORT INFORMATION
  Report Type: 
  Country: None (occurrence: None)
  Receive Date: 20120430
  Receipt Date: 20120410
  Transmission Date: 20120825
  Serious: Yes (Other)
  Sender: FDA-Public Use
  Company Number: US-GLAXOSMITHKLINE-A0973946A

PATIENT
  Age: 56 Year
  Sex: Female
  Weight: 47.7 kg

DRUGS (2)
  1. VOTRIENT [Suspect]
     Indication: PRODUCT USED FOR UNKNOWN INDICATION
     Dosage: 200MG PER DAY
     Route: 048
     Dates: start: 20120301
  2. NEUPOGEN [Concomitant]

REACTIONS (3)
  - DECREASED APPETITE [None]
  - NEUTROPENIA [None]
  - FATIGUE [None]
